FAERS Safety Report 6630586-8 (Version None)
Quarter: 2010Q1

REPORT INFORMATION
  Report Type: 
  Country: None (occurrence: None)
  Receive Date: 20100311
  Receipt Date: 20090521
  Transmission Date: 20100710
  Serious: No
  Sender: FDA-Public Use
  Company Number: US-BIOGENIDEC-2009BI015558

PATIENT
  Age: 70 Year
  Sex: Female

DRUGS (2)
  1. AVONEX [Suspect]
     Indication: MULTIPLE SCLEROSIS
     Route: 030
     Dates: start: 20090411, end: 20090502
  2. AVONEX [Suspect]
     Route: 030
     Dates: start: 20090509

REACTIONS (2)
  - INJURY ASSOCIATED WITH DEVICE [None]
  - MYALGIA [None]
